FAERS Safety Report 8115385-2 (Version None)
Quarter: 2012Q1

REPORT INFORMATION
  Report Type: 
  Country: None (occurrence: None)
  Receive Date: 20120206
  Receipt Date: 20120206
  Transmission Date: 20120608
  Serious: No
  Sender: FDA-Public Use
  Company Number: None

PATIENT
  Age: 29 Year
  Sex: Male
  Weight: 79.378 kg

DRUGS (1)
  1. PROPECIA [Suspect]

REACTIONS (4)
  - DEPRESSION [None]
  - ANXIETY [None]
  - LOSS OF LIBIDO [None]
  - ERECTILE DYSFUNCTION [None]
